FAERS Safety Report 6746395-5 (Version None)
Quarter: 2010Q2

REPORT INFORMATION
  Report Type: 
  Country: None (occurrence: None)
  Receive Date: 20100528
  Receipt Date: 20090821
  Transmission Date: 20101027
  Serious: Yes (Hospitalization)
  Sender: FDA-Public Use
  Company Number: A0797305A

PATIENT
  Age: 1 Year
  Sex: Female
  Weight: 8.7 kg

DRUGS (6)
  1. FLOLAN [Suspect]
     Indication: PULMONARY ARTERIAL HYPERTENSION
     Dosage: 101NGKM UNKNOWN
     Route: 065
     Dates: start: 20080117, end: 20090709
  2. DIGOXIN [Concomitant]
  3. LASIX [Concomitant]
  4. FER-IN-SOL [Concomitant]
  5. SILDENAFIL [Concomitant]
  6. REMODULIN [Concomitant]
     Route: 042

REACTIONS (1)
  - THROMBOCYTOPENIA [None]
